FAERS Safety Report 9150224 (Version 1)
Quarter: 2013Q1

REPORT INFORMATION
  Report Type: Spontaneous
  Country: US (occurrence: US)
  Receive Date: 20130308
  Receipt Date: 20130308
  Transmission Date: 20140127
  Serious: No
  Sender: FDA-Public Use
  Company Number: US-009507513-1303USA003005

PATIENT
  Age: 29 Year
  Sex: Female

DRUGS (6)
  1. MONTELUKAST SODIUM [Suspect]
     Indication: ANAPHYLAXIS PROPHYLAXIS
     Dosage: UNK, QD
     Route: 048
  2. MOMETASONE FUROATE [Suspect]
     Indication: ANAPHYLAXIS PROPHYLAXIS
     Dosage: UNK, QD
  3. FORMOTEROL FUMARATE [Suspect]
     Indication: ANAPHYLAXIS PROPHYLAXIS
     Dosage: UNK, QD
  4. FEXOFENADINE HYDROCHLORIDE [Suspect]
  5. CETIRIZINE HYDROCHLORIDE [Suspect]
  6. RANITIDINE [Suspect]

REACTIONS (1)
  - Drug ineffective [Unknown]
